FAERS Safety Report 19897737 (Version 1)
Quarter: 2021Q3

REPORT INFORMATION
  Report Type: Report from Study
  Country: JP (occurrence: JP)
  Receive Date: 20210930
  Receipt Date: 20210930
  Transmission Date: 20211014
  Serious: Yes (Other)
  Sender: FDA-Public Use
  Company Number: JP-AUROBINDO-AUR-APL-2021-040844

PATIENT
  Age: 72 Year
  Sex: Male
  Weight: 42 kg

DRUGS (8)
  1. FOLOTYN [Suspect]
     Active Substance: PRALATREXATE
     Dosage: 15 MILLIGRAM/SQ. METER, DAILY
     Route: 042
     Dates: start: 20210617, end: 20210617
  2. FOLOTYN [Suspect]
     Active Substance: PRALATREXATE
     Dosage: 15 MILLIGRAM/SQ. METER, DAILY
     Route: 042
     Dates: start: 20210707, end: 20210707
  3. FOLOTYN [Suspect]
     Active Substance: PRALATREXATE
     Indication: ANGIOIMMUNOBLASTIC T-CELL LYMPHOMA STAGE IV
     Dosage: 30 MILLIGRAM/SQ. METER, DAILY
     Route: 042
     Dates: start: 20210513, end: 20210513
  4. FOLOTYN [Suspect]
     Active Substance: PRALATREXATE
     Dosage: 15 MILLIGRAM/SQ. METER, DAILY
     Route: 042
     Dates: start: 20210610, end: 20210610
  5. FOLIC ACID. [Concomitant]
     Active Substance: FOLIC ACID
     Indication: PRODUCT USED FOR UNKNOWN INDICATION
     Dosage: UNK
     Route: 065
     Dates: start: 20210526, end: 20210721
  6. FOLOTYN [Suspect]
     Active Substance: PRALATREXATE
     Dosage: 30 MILLIGRAM/SQ. METER, DAILY
     Route: 042
     Dates: start: 20210520, end: 20210520
  7. FOLOTYN [Suspect]
     Active Substance: PRALATREXATE
     Dosage: 30 MILLIGRAM/SQ. METER, DAILY
     Route: 042
     Dates: start: 20210527, end: 20210527
  8. VITAMIN B12 [Concomitant]
     Active Substance: CYANOCOBALAMIN
     Indication: PRODUCT USED FOR UNKNOWN INDICATION
     Dosage: UNK
     Route: 065
     Dates: start: 20210421, end: 20210707

REACTIONS (2)
  - Platelet count decreased [Recovered/Resolved]
  - Therapeutic response decreased [Recovered/Resolved]

NARRATIVE: CASE EVENT DATE: 20210603
